FAERS Safety Report 5075898-7 (Version None)
Quarter: 2006Q3

REPORT INFORMATION
  Report Type: 
  Country: None (occurrence: None)
  Receive Date: 20060807
  Receipt Date: 20060726
  Transmission Date: 20061208
  Serious: Yes (Hospitalization)
  Sender: FDA-Public Use
  Company Number: 2006091402

PATIENT
  Age: 43 Year
  Sex: Female

DRUGS (1)
  1. DILANTIN [Suspect]
     Indication: DRUG USE FOR UNKNOWN INDICATION
     Dates: start: 19650101

REACTIONS (2)
  - CONVULSION [None]
  - POOR QUALITY DRUG ADMINISTERED [None]
